FAERS Safety Report 15468635 (Version 1)
Quarter: 2018Q4

REPORT INFORMATION
  Report Type: Spontaneous
  Country: US (occurrence: US)
  Receive Date: 20181005
  Receipt Date: 20181005
  Transmission Date: 20190204
  Serious: Yes (Other)
  Sender: FDA-Public Use
  Company Number: US-AMGEN-USASP2018136194

PATIENT
  Age: 16 Year
  Sex: Female

DRUGS (1)
  1. BLINCYTO [Suspect]
     Active Substance: BLINATUMOMAB
     Indication: LEUKAEMIA
     Dosage: UNK
     Route: 065

REACTIONS (1)
  - Device related infection [Unknown]
